FAERS Safety Report 26102006 (Version 1)
Quarter: 2025Q4

REPORT INFORMATION
  Report Type: Spontaneous
  Country: EU (occurrence: EU)
  Receive Date: 20251128
  Receipt Date: 20251128
  Transmission Date: 20260118
  Serious: Yes (Hospitalization, Other)
  Sender: COSETTE PHARMACEUTICALS INC
  Company Number: EU-CDSU_IT-GR-MEN-118463

PATIENT
  Sex: Male
  Weight: 2.3 kg

DRUGS (1)
  1. BENICAR [Suspect]
     Active Substance: OLMESARTAN MEDOXOMIL
     Indication: Foetal exposure during pregnancy
     Dosage: UNKNOWN
     Route: 064

REACTIONS (12)
  - Neonatal pneumothorax [Unknown]
  - Renal vein thrombosis [Unknown]
  - Small for dates baby [Unknown]
  - Infection [Unknown]
  - Low birth weight baby [Unknown]
  - Oedema [Unknown]
  - Pulmonary hypoplasia [Unknown]
  - Renal failure [Unknown]
  - Neonatal anuria [Unknown]
  - Hypotension [Unknown]
  - Blood creatinine increased [Unknown]
  - Foetal exposure during pregnancy [Unknown]
